FAERS Safety Report 9501426 (Version 4)
Quarter: 2013Q4

REPORT INFORMATION
  Report Type: Spontaneous
  Country: US (occurrence: US)
  Receive Date: 20130905
  Receipt Date: 20131015
  Transmission Date: 20140711
  Serious: Yes (Death, Life-Threatening)
  Sender: FDA-Public Use
  Company Number: US-GLAXOSMITHKLINE-A1040084A

PATIENT
  Age: 70 Year
  Sex: Male

DRUGS (4)
  1. VOTRIENT [Suspect]
     Indication: RENAL CELL CARCINOMA
     Dosage: 800MG PER DAY
     Route: 048
     Dates: start: 20130713
  2. MORPHINE [Concomitant]
  3. HCTZ [Concomitant]
  4. HYDROMORPHONE [Concomitant]

REACTIONS (2)
  - Metastases to liver [Fatal]
  - Drug ineffective [Unknown]
